FAERS Safety Report 23695465 (Version 1)
Quarter: 2024Q2

REPORT INFORMATION
  Report Type: Spontaneous
  Country: US (occurrence: US)
  Receive Date: 20240402
  Receipt Date: 20240402
  Transmission Date: 20240715
  Serious: Yes (Other)
  Sender: FDA-Public Use
  Company Number: US-UCBSA-2024015364

PATIENT
  Age: 40 Year
  Sex: Male

DRUGS (1)
  1. CIMZIA [Suspect]
     Active Substance: CERTOLIZUMAB PEGOL
     Indication: Psoriatic arthropathy
     Dosage: 200 MILLIGRAM OTHER
     Route: 058
     Dates: start: 202103

REACTIONS (3)
  - Psoriatic arthropathy [Unknown]
  - Therapy interrupted [Unknown]
  - Product distribution issue [Unknown]

NARRATIVE: CASE EVENT DATE: 20220217
